FAERS Safety Report 6487408-8 (Version None)
Quarter: 2009Q4

REPORT INFORMATION
  Report Type: 
  Country: None (occurrence: None)
  Receive Date: 20091210
  Receipt Date: 20091207
  Transmission Date: 20100525
  Serious: Yes (Hospitalization)
  Sender: FDA-Public Use
  Company Number: JP-BAYER-200810849BYL

PATIENT
  Age: 75 Year
  Sex: Male

DRUGS (3)
  1. NEXAVAR [Suspect]
     Indication: RENAL CELL CARCINOMA
     Dosage: TOTAL DAILY DOSE: 800 MG  UNIT DOSE: 200 MG
     Route: 048
     Dates: start: 20080422, end: 20080507
  2. CALONAL [Suspect]
     Indication: STEVENS-JOHNSON SYNDROME
     Route: 048
     Dates: start: 20080422
  3. MAGLAX [Concomitant]
     Dosage: TOTAL DAILY DOSE: 990 MG
     Route: 048
     Dates: start: 20080321, end: 20080507

REACTIONS (1)
  - STEVENS-JOHNSON SYNDROME [None]
